FAERS Safety Report 25168600 (Version 1)
Quarter: 2025Q2

REPORT INFORMATION
  Report Type: Spontaneous
  Country: US (occurrence: US)
  Receive Date: 20250407
  Receipt Date: 20250407
  Transmission Date: 20250716
  Serious: Yes (Hospitalization, Other)
  Sender: DR REDDYS
  Company Number: US-DRL-USA-USA/2025/04/005084

PATIENT
  Age: 62 Year
  Sex: Male

DRUGS (4)
  1. BORTEZOMIB [Suspect]
     Active Substance: BORTEZOMIB
     Indication: Cardiac amyloidosis
  2. CYCLOPHOSPHAMIDE [Suspect]
     Active Substance: CYCLOPHOSPHAMIDE
     Indication: Cardiac amyloidosis
  3. DARATUMUMAB [Suspect]
     Active Substance: DARATUMUMAB
     Indication: Cardiac amyloidosis
  4. DEXAMETHASONE [Suspect]
     Active Substance: DEXAMETHASONE
     Indication: Cardiac amyloidosis

REACTIONS (2)
  - Cardiac failure [Unknown]
  - Drug ineffective for unapproved indication [Unknown]
